FAERS Safety Report 7341335 (Version 1)
Quarter: 2020Q3

REPORT INFORMATION
  Report Type: Report from Study
  Country: US (occurrence: US)
  Receive Date: 20100401
  Receipt Date: 20100401
  Transmission Date: 20201105
  Serious: Yes (Hospitalization)
  Sender: FDA-Public Use
  Company Number: US-JNJFOC-20100306733

PATIENT
  Age: 15 Year
  Sex: Female

DRUGS (2)
  1. REMICADE [Suspect]
     Active Substance: INFLIXIMAB
     Indication: COLITIS ULCERATIVE
     Route: 042
  2. REMICADE [Suspect]
     Active Substance: INFLIXIMAB
     Route: 042

REACTIONS (1)
  - Infusion related reaction [Recovered/Resolved]

NARRATIVE: CASE EVENT DATE: 20100114
